FAERS Safety Report 5068907-2 (Version None)
Quarter: 2006Q3

REPORT INFORMATION
  Report Type: 
  Country: None (occurrence: None)
  Receive Date: 20060717
  Receipt Date: 20051205
  Transmission Date: 20061208
  Serious: Yes (Hospitalization)
  Sender: FDA-Public Use
  Company Number: 2005002334

PATIENT
  Age: 77 Year
  Sex: Male

DRUGS (7)
  1. TARCEVA [Suspect]
     Indication: NON-SMALL CELL LUNG CANCER
     Dosage: 150 MG (QD), ORAL
     Route: 048
     Dates: start: 20051101, end: 20051122
  2. XELODA [Concomitant]
  3. CIMETIDINE [Concomitant]
  4. WARFARIN SODIUM [Concomitant]
  5. NEXIUM [Concomitant]
  6. BROMOCRIPTINE MESYLATE [Concomitant]
  7. HERBAL SUPPLEMENTS/NUTRACEUTICALS [Concomitant]

REACTIONS (5)
  - DIARRHOEA [None]
  - RASH [None]
  - RENAL DISORDER [None]
  - RENAL IMPAIRMENT [None]
  - URINE OUTPUT INCREASED [None]
